FAERS Safety Report 5995993-5 (Version None)
Quarter: 2008Q4

REPORT INFORMATION
  Report Type: 
  Country: None (occurrence: None)
  Receive Date: 20081212
  Receipt Date: 20081007
  Transmission Date: 20090506
  Serious: No
  Sender: FDA-Public Use
  Company Number: US-ABBOTT-08P-163-0480183-00

PATIENT
  Sex: Female
  Weight: 48.124 kg

DRUGS (8)
  1. HUMIRA [Suspect]
     Indication: ANKYLOSING SPONDYLITIS
     Route: 058
     Dates: start: 20081006
  2. CONJUGATED ESTROGENS [Concomitant]
     Indication: HORMONE REPLACEMENT THERAPY
     Route: 048
     Dates: start: 20070901
  3. IBUPROFEN [Concomitant]
     Indication: ANKYLOSING SPONDYLITIS
     Dosage: TAKES 2-3 TABS
     Route: 048
     Dates: start: 20000101
  4. IBUPROFEN [Concomitant]
     Indication: PAIN
  5. GLYCOPYRRONIUM [Concomitant]
     Indication: IRRITABLE BOWEL SYNDROME
     Route: 048
     Dates: start: 20080501
  6. HYDROCODONE BITARTRATE [Concomitant]
     Indication: ANKYLOSING SPONDYLITIS
     Dosage: 5/500MG
     Route: 048
     Dates: start: 20070401
  7. HYDROCODONE BITARTRATE [Concomitant]
     Indication: PAIN
  8. TIZANIDINE HYDROCHLORIDE [Concomitant]
     Indication: MUSCLE RELAXANT THERAPY
     Dosage: AT BEDTIME
     Route: 048
     Dates: start: 20070901

REACTIONS (5)
  - ERYTHEMA [None]
  - HERPES ZOSTER [None]
  - NODULE [None]
  - PRURITUS [None]
  - SWELLING [None]
